FAERS Safety Report 6818220-5 (Version None)
Quarter: 2010Q3

REPORT INFORMATION
  Report Type: 
  Country: None (occurrence: None)
  Receive Date: 20100706
  Receipt Date: 20070709
  Transmission Date: 20110219
  Serious: No
  Sender: FDA-Public Use
  Company Number: US-PFIZER INC-2007047222

PATIENT
  Sex: Female
  Weight: 35 kg

DRUGS (2)
  1. ZITHROMAX [Suspect]
     Indication: COELIAC DISEASE
     Dates: start: 20070606
  2. PREVACID [Concomitant]

REACTIONS (1)
  - ABDOMINAL PAIN [None]
